FAERS Safety Report 17520446 (Version 1)
Quarter: 2020Q1

REPORT INFORMATION
  Report Type: Spontaneous
  Country: CA (occurrence: CA)
  Receive Date: 20200309
  Receipt Date: 20200309
  Transmission Date: 20200409
  Serious: Yes (Hospitalization)
  Sender: FDA-Public Use
  Company Number: CA-CELGENEUS-CAN-20200301503

PATIENT
  Sex: Female

DRUGS (1)
  1. OTEZLA [Suspect]
     Active Substance: APREMILAST
     Indication: PRODUCT USED FOR UNKNOWN INDICATION
     Dosage: 60 MILLIGRAM
     Route: 048

REACTIONS (7)
  - Musculoskeletal chest pain [Unknown]
  - Pain [Unknown]
  - Herpes virus infection [Unknown]
  - Nausea [Unknown]
  - Spinal pain [Unknown]
  - Vomiting [Unknown]
  - Dehydration [Unknown]
